FAERS Safety Report 8357314-2 (Version None)
Quarter: 2012Q2

REPORT INFORMATION
  Report Type: 
  Country: None (occurrence: None)
  Receive Date: 20120514
  Receipt Date: 20120509
  Transmission Date: 20120825
  Serious: Yes (Death)
  Sender: FDA-Public Use
  Company Number: DE-ROCHE-1068063

PATIENT
  Weight: 71 kg

DRUGS (1)
  1. BONIVA [Suspect]
     Indication: PRODUCT USED FOR UNKNOWN INDICATION
     Route: 042
     Dates: start: 20101012, end: 20110111

REACTIONS (2)
  - SARCOIDOSIS [None]
  - CHRONIC OBSTRUCTIVE PULMONARY DISEASE [None]
